FAERS Safety Report 20644432 (Version 9)
Quarter: 2024Q1

REPORT INFORMATION
  Report Type: Spontaneous
  Country: US (occurrence: US)
  Receive Date: 20220328
  Receipt Date: 20240102
  Transmission Date: 20240409
  Serious: No
  Sender: FDA-Public Use
  Company Number: US-SA-SAC20220321000337

PATIENT
  Age: 49 Year
  Sex: Male

DRUGS (4)
  1. FABRAZYME [Suspect]
     Active Substance: AGALSIDASE BETA
     Indication: Fabry^s disease
     Dosage: 60 MG, QOW
     Route: 041
     Dates: start: 20151022, end: 202204
  2. FABRAZYME [Suspect]
     Active Substance: AGALSIDASE BETA
     Dosage: 60 MG, QW
     Route: 041
     Dates: start: 20220428, end: 202205
  3. FABRAZYME [Suspect]
     Active Substance: AGALSIDASE BETA
     Dosage: 60 MG (25 MG+35 MG), QW
     Route: 041
     Dates: start: 2022
  4. FABRAZYME [Suspect]
     Active Substance: AGALSIDASE BETA
     Dosage: 70 MG, QW
     Route: 041

REACTIONS (7)
  - Migraine [Not Recovered/Not Resolved]
  - Gastrointestinal disorder [Unknown]
  - Illness [Unknown]
  - Weight increased [Unknown]
  - Feeling abnormal [Unknown]
  - COVID-19 [Unknown]
  - Inappropriate schedule of product administration [Unknown]

NARRATIVE: CASE EVENT DATE: 20220428
